FAERS Safety Report 22530775 (Version 6)
Quarter: 2023Q4

REPORT INFORMATION
  Report Type: Spontaneous
  Country: US (occurrence: US)
  Receive Date: 20230607
  Receipt Date: 20231121
  Transmission Date: 20240109
  Serious: Yes (Hospitalization, Other)
  Sender: FDA-Public Use
  Company Number: US-PFIZER INC-PV202300098518

PATIENT
  Age: 74 Year
  Sex: Male
  Weight: 81.633 kg

DRUGS (4)
  1. INLYTA [Suspect]
     Active Substance: AXITINIB
     Indication: Renal cancer
     Dosage: 5 MG, 2X/DAY (WITH OR WITHOUT FOOD)
     Route: 048
  2. INLYTA [Suspect]
     Active Substance: AXITINIB
     Indication: Uterine neoplasm
     Dosage: 10 MG, 2X/DAY
     Dates: start: 202306
  3. INLYTA [Suspect]
     Active Substance: AXITINIB
     Indication: Neoplasm malignant
  4. NULEB [Concomitant]
     Dosage: UNK
     Dates: start: 202306

REACTIONS (3)
  - Lower limb fracture [Unknown]
  - Pain [Unknown]
  - Iron deficiency anaemia [Unknown]
